FAERS Safety Report 22006753 (Version 1)
Quarter: 2023Q1

REPORT INFORMATION
  Report Type: Spontaneous
  Country: OM (occurrence: OM)
  Receive Date: 20230217
  Receipt Date: 20230217
  Transmission Date: 20230417
  Serious: Yes (Hospitalization, Other)
  Sender: FDA-Public Use
  Company Number: OM-PAIPHARMA-2023-OM-000001

PATIENT
  Age: 34 Year
  Sex: Male

DRUGS (1)
  1. PREDNISOLONE SODIUM PHOSPHATE [Suspect]
     Active Substance: PREDNISOLONE SODIUM PHOSPHATE
     Indication: Endocrine ophthalmopathy
     Dosage: 80 MG DAILY IN TAPERING DOSES
     Route: 048

REACTIONS (1)
  - Central serous chorioretinopathy [Recovered/Resolved]
